FAERS Safety Report 11966142 (Version 1)
Quarter: 2016Q1

REPORT INFORMATION
  Report Type: Spontaneous
  Country: US (occurrence: US)
  Receive Date: 20160127
  Receipt Date: 20160127
  Transmission Date: 20160526
  Serious: No
  Sender: FDA-Public Use
  Company Number: US-PFIZER INC-2016009760

PATIENT
  Age: 55 Year
  Sex: Male
  Weight: 65.77 kg

DRUGS (10)
  1. OXYCODONE [Concomitant]
     Active Substance: OXYCODONE
     Dosage: UNK, AS NEEDED
  2. SIROLIMUS. [Concomitant]
     Active Substance: SIROLIMUS
     Dosage: ONE TABLET, ONCE A DAY
  3. HYDROCODONE [Concomitant]
     Active Substance: HYDROCODONE
     Dosage: UNK, AS NEEDED
  4. DELTASONE [Concomitant]
     Active Substance: PREDNISONE
     Dosage: 5 MG, 1X/DAY
  5. NEURONTIN [Suspect]
     Active Substance: GABAPENTIN
     Indication: NEUROPATHY PERIPHERAL
     Dosage: 300 MG EVERY NIGHT AT BED TIME
     Route: 048
  6. NEURONTIN [Suspect]
     Active Substance: GABAPENTIN
     Indication: FIBROMYALGIA
  7. PLETAL [Concomitant]
     Active Substance: CILOSTAZOL
     Dosage: 100 MG, 2X/DAY
  8. CARDURA [Concomitant]
     Active Substance: DOXAZOSIN MESYLATE
     Dosage: 8 MG, 2 TABLETS DAILY
     Route: 048
  9. VENLAFAXINE [Concomitant]
     Active Substance: VENLAFAXINE HYDROCHLORIDE
     Dosage: ONE CAPSULE TWICE A DAY
     Route: 048
  10. TACROLIMUS. [Concomitant]
     Active Substance: TACROLIMUS
     Dosage: 1 MG, 2X/DAY

REACTIONS (4)
  - Peripheral swelling [Not Recovered/Not Resolved]
  - Drug ineffective [Unknown]
  - Tremor [Not Recovered/Not Resolved]
  - Eye disorder [Not Recovered/Not Resolved]
